FAERS Safety Report 4705604-4 (Version None)
Quarter: 2005Q3

REPORT INFORMATION
  Report Type: 
  Country: None (occurrence: None)
  Receive Date: 20050701
  Receipt Date: 20050621
  Transmission Date: 20060218
  Serious: Yes (Hospitalization)
  Sender: FDA-Public Use
  Company Number: MX-BOEHRINGER INGELHEIM PHARMACEUTICALS, INC.-2005-BP-10782MX

PATIENT
  Sex: Male

DRUGS (1)
  1. COMBIVENT [Suspect]
     Indication: CHRONIC OBSTRUCTIVE PULMONARY DISEASE
     Dosage: 0.50/2.5 MG
     Route: 055
     Dates: start: 20050610, end: 20050620

REACTIONS (5)
  - CONVULSION [None]
  - FEELING ABNORMAL [None]
  - LIVER DISORDER [None]
  - RENAL DISORDER [None]
  - SYNCOPE [None]
